FAERS Safety Report 23265363 (Version 1)
Quarter: 2023Q4

REPORT INFORMATION
  Report Type: Spontaneous
  Country: US (occurrence: US)
  Receive Date: 20231206
  Receipt Date: 20231206
  Transmission Date: 20240110
  Serious: No
  Sender: FDA-Public Use
  Company Number: US-PHARMAESSENTIA CORPORATION-US-2023-PEC-002230

PATIENT
  Sex: Male

DRUGS (2)
  1. BESREMI [Suspect]
     Active Substance: ROPEGINTERFERON ALFA-2B-NJFT
     Indication: Essential thrombocythaemia
     Dosage: 100 MCG, Q2W
     Route: 058
     Dates: start: 20230824
  2. ANAGRELIDE [Concomitant]
     Active Substance: ANAGRELIDE
     Indication: Thrombosis
     Dosage: UNK
     Route: 065
     Dates: start: 20230802

REACTIONS (3)
  - Back pain [Recovering/Resolving]
  - Off label use [Unknown]
  - Arthralgia [Recovering/Resolving]

NARRATIVE: CASE EVENT DATE: 20231001
